FAERS Safety Report 5087606-4 (Version None)
Quarter: 2006Q3

REPORT INFORMATION
  Report Type: 
  Country: None (occurrence: None)
  Receive Date: 20060727
  Receipt Date: 20060404
  Transmission Date: 20061208
  Serious: Yes (Other)
  Sender: FDA-Public Use
  Company Number: 2006048121

PATIENT
  Sex: 0

DRUGS (1)
  1. LYRICA [Suspect]
     Indication: DIABETIC NEUROPATHY
     Dosage: (2 IN 1 D)

REACTIONS (4)
  - BALANCE DISORDER [None]
  - BLOOD GLUCOSE INCREASED [None]
  - FEELING JITTERY [None]
  - SOMNOLENCE [None]
